FAERS Safety Report 8715479 (Version 4)
Quarter: 2012Q4

REPORT INFORMATION
  Report Type: 
  Country: JP (occurrence: JP)
  Receive Date: 20120809
  Receipt Date: 20120912
  Transmission Date: 20130627
  Serious: Yes (Hospitalization)
  Sender: FDA-Public Use
  Company Number: JP-GILEAD-2012-0059430

PATIENT
  Age: 69 Year
  Sex: Female

DRUGS (7)
  1. AMBRISENTAN [Suspect]
     Indication: PULMONARY HYPERTENSION
     Dosage: 5MG Per day
     Route: 048
     Dates: start: 20110510
  2. AMBRISENTAN [Suspect]
     Indication: RHEUMATOID ARTHRITIS
     Dosage: 2.5 mg, UNK
     Route: 048
     Dates: start: 20110426, end: 20110509
  3. AMBRISENTAN [Suspect]
     Indication: CONNECTIVE TISSUE DISORDER
  4. REVATIO [Concomitant]
     Indication: PULMONARY HYPERTENSION
     Dosage: 60MG Per day
     Route: 048
  5. REVATIO [Concomitant]
     Dosage: 20MG Three times per day
     Route: 048
  6. PREDNISOLONE [Concomitant]
     Indication: RHEUMATOID ARTHRITIS
     Route: 048
  7. PREDNISOLONE [Concomitant]
     Route: 048

REACTIONS (9)
  - Liver disorder [Recovering/Resolving]
  - Aspartate aminotransferase increased [Unknown]
  - Alanine aminotransferase increased [Unknown]
  - Gamma-glutamyltransferase increased [Unknown]
  - Blood bilirubin increased [Unknown]
  - Blood alkaline phosphatase increased [Unknown]
  - Cytomegalovirus test positive [Unknown]
  - Jaundice [Unknown]
  - Decreased appetite [Unknown]
